FAERS Safety Report 10237594 (Version 1)
Quarter: 2014Q2

REPORT INFORMATION
  Report Type: Spontaneous
  Country: DE (occurrence: DE)
  Receive Date: 20140616
  Receipt Date: 20140616
  Transmission Date: 20141212
  Serious: Yes (Hospitalization)
  Sender: FDA-Public Use
  Company Number: DE-009507513-1406DEU005354

PATIENT
  Age: 7 Year
  Sex: Male
  Weight: 27 kg

DRUGS (5)
  1. TIMOTHY GRASS POLLEN ALLERGEN EXTRACT [Suspect]
     Indication: HYPERSENSITIVITY
     Dosage: 75000 SQ-T ORAL LYOPHILISATE
     Route: 060
     Dates: start: 20140220, end: 20140303
  2. SALMETEROL [Concomitant]
     Dosage: UNK
     Dates: start: 20100222
  3. SINGULAIR 10 MG FILMTABLETTEN [Concomitant]
     Dosage: UNK
     Dates: start: 20100222
  4. AERIUS [Concomitant]
     Dosage: UNK
  5. LIVOCAB [Concomitant]
     Dosage: UNK

REACTIONS (8)
  - Abdominal pain [Recovered/Resolved]
  - General physical health deterioration [Recovered/Resolved]
  - Pallor [Recovered/Resolved]
  - Malaise [Recovered/Resolved]
  - Conjunctival hyperaemia [Recovered/Resolved]
  - Pharyngeal erythema [Recovered/Resolved]
  - Vomiting [Recovered/Resolved]
  - Nausea [Recovered/Resolved]
